FAERS Safety Report 7037358-3 (Version None)
Quarter: 2010Q4

REPORT INFORMATION
  Report Type: 
  Country: None (occurrence: None)
  Receive Date: 20101011
  Receipt Date: 20100928
  Transmission Date: 20110411
  Serious: Yes (Death, Other)
  Sender: FDA-Public Use
  Company Number: US-ELI_LILLY_AND_COMPANY-US201009007735

PATIENT
  Age: 60 Year
  Sex: Male

DRUGS (12)
  1. CYMBALTA [Suspect]
     Indication: DEPRESSION
     Dosage: UNK, UNKNOWN
     Dates: end: 20100829
  2. GEMZAR [Suspect]
     Indication: ADENOCARCINOMA PANCREAS
     Dates: start: 20100819, end: 20100819
  3. TRAZODONE HCL [Concomitant]
  4. FLUOXETINE [Concomitant]
  5. METHADONE [Concomitant]
  6. XANAX [Concomitant]
  7. TRIAMTERENE AND HYDROCHLOROTHIAZIDE [Concomitant]
  8. ST. JOHN'S WORT [Concomitant]
  9. SUPER B COMPLEX [Concomitant]
  10. MULTIVITAMINS PLUS IRON [Concomitant]
  11. LAMICTAL [Concomitant]
  12. ASCORBIC ACID [Concomitant]

REACTIONS (1)
  - PANCREATIC CARCINOMA [None]
